FAERS Safety Report 8615942-0 (Version None)
Quarter: 2012Q3

REPORT INFORMATION
  Report Type: 
  Country: None (occurrence: None)
  Receive Date: 20120823
  Receipt Date: 20120817
  Transmission Date: 20120928
  Serious: Yes (Other)
  Sender: FDA-Public Use
  Company Number: DK-GLAXOSMITHKLINE-B0824424A

PATIENT
  Sex: Male

DRUGS (6)
  1. ROPINIROLE [Suspect]
     Indication: PARKINSON'S DISEASE
     Route: 048
     Dates: start: 20110420
  2. REQUIP CR [Suspect]
     Indication: PARKINSON'S DISEASE
     Route: 048
     Dates: start: 20120420
  3. SIMVASTATIN [Concomitant]
  4. FISH OIL [Concomitant]
  5. VITAMIN TAB [Concomitant]
  6. GARLIC [Concomitant]

REACTIONS (4)
  - PRESSURE OF SPEECH [None]
  - PSYCHOMOTOR HYPERACTIVITY [None]
  - SUDDEN ONSET OF SLEEP [None]
  - WEIGHT DECREASED [None]
